FAERS Safety Report 25260955 (Version 1)
Quarter: 2025Q2

REPORT INFORMATION
  Report Type: Spontaneous
  Country: US (occurrence: US)
  Receive Date: 20250501
  Receipt Date: 20250501
  Transmission Date: 20250717
  Serious: No
  Sender: Tarsus Pharmaceuticals
  Company Number: US-TARSUS PHARMACEUTICALS-TSP-US-2025-000269

PATIENT

DRUGS (1)
  1. XDEMVY [Suspect]
     Active Substance: LOTILANER
     Indication: Product used for unknown indication
     Route: 065

REACTIONS (5)
  - Vitreous floaters [Not Recovered/Not Resolved]
  - Instillation site erythema [Recovered/Resolved]
  - Vision blurred [Recovered/Resolved]
  - Photosensitivity reaction [Recovered/Resolved]
  - Instillation site irritation [Recovered/Resolved]
